FAERS Safety Report 26099428 (Version 1)
Quarter: 2025Q4

REPORT INFORMATION
  Report Type: Spontaneous
  Country: US (occurrence: US)
  Receive Date: 20251128
  Receipt Date: 20251128
  Transmission Date: 20260117
  Serious: No
  Sender: ROCHE
  Company Number: US-ROCHE-10000443190

PATIENT

DRUGS (3)
  1. ALECENSA [Suspect]
     Active Substance: ALECTINIB HYDROCHLORIDE
     Indication: Non-small cell lung cancer
     Route: 065
     Dates: start: 202408
  2. IRON [Concomitant]
     Active Substance: IRON
     Dosage: AS NEEDED
  3. IRON [Concomitant]
     Active Substance: IRON

REACTIONS (2)
  - Constipation [Unknown]
  - Weight increased [Unknown]
